FAERS Safety Report 7357259-0 (Version None)
Quarter: 2011Q1

REPORT INFORMATION
  Report Type: 
  Country: None (occurrence: None)
  Receive Date: 20110308
  Receipt Date: 20110222
  Transmission Date: 20110831
  Serious: Yes (Hospitalization)
  Sender: FDA-Public Use
  Company Number: 028157

PATIENT
  Age: 36 Year
  Sex: Female
  Weight: 44 kg

DRUGS (1)
  1. KEPPRA [Suspect]
     Indication: FIBROMYALGIA
     Dosage: (3000 MG EVERY OTHER DAY, ORAL), (9000 MG ORAL)
     Route: 048
     Dates: start: 20091012

REACTIONS (1)
  - DYSPHAGIA [None]
